FAERS Safety Report 5847879-4 (Version None)
Quarter: 2008Q3

REPORT INFORMATION
  Report Type: 
  Country: None (occurrence: None)
  Receive Date: 20080814
  Receipt Date: 20080730
  Transmission Date: 20090109
  Serious: Yes (Other)
  Sender: FDA-Public Use
  Company Number: 19818

PATIENT
  Age: 62 Year
  Sex: Female
  Weight: 64.4 kg

DRUGS (3)
  1. PACLITAXEL [Suspect]
     Indication: CERVIX CARCINOMA
     Dosage: 294 MG IV
     Route: 042
     Dates: start: 20070530
  2. LOSARTAN POTASSIUM [Concomitant]
  3. GLUCOSAMINE [Concomitant]

REACTIONS (6)
  - CHEST DISCOMFORT [None]
  - CHEST PAIN [None]
  - FEELING ABNORMAL [None]
  - HOT FLUSH [None]
  - HYPERSENSITIVITY [None]
  - INFUSION RELATED REACTION [None]
